FAERS Safety Report 9506241 (Version 1)
Quarter: 2013Q1

REPORT INFORMATION
  Report Type: Spontaneous
  Country: US (occurrence: None)
  Receive Date: 20130301
  Receipt Date: 20130301
  Transmission Date: 20140127
  Serious: Yes (Hospitalization)
  Sender: FDA-Public Use
  Company Number: RB-35933-2011

PATIENT
  Sex: Male

DRUGS (2)
  1. SUBOXONE, 8 MG, BECKIT RICKETT [Suspect]
     Indication: DRUG DEPENDENCE
     Route: 064
     Dates: start: 2011, end: 20110511
  2. SUBUTEX 8 MG [Suspect]
     Indication: DRUG DEPENDENCE
     Route: 064
     Dates: start: 20110421, end: 20111206

REACTIONS (2)
  - Foetal exposure during pregnancy [None]
  - Drug withdrawal syndrome neonatal [None]
